FAERS Safety Report 5136883-X (Version None)
Quarter: 2006Q4

REPORT INFORMATION
  Report Type: 
  Country: None (occurrence: None)
  Receive Date: 20061023
  Receipt Date: 20061009
  Transmission Date: 20070319
  Serious: Yes (Hospitalization)
  Sender: FDA-Public Use
  Company Number: 2006123362

PATIENT
  Age: 65 Year
  Sex: Female

DRUGS (6)
  1. LYRICA [Suspect]
     Indication: POLYNEUROPATHY
     Dosage: 300 MG (150 MG, 2 IN 1 D), ORAL
     Route: 048
  2. TORSEMIDE [Concomitant]
  3. GYNODIAN (ESTRADIOL VALERATE, PRASTERONE ENANTATE) [Concomitant]
  4. TEGRETAL (CARBAMAZEPINE) TEGRETAL (CARBAMAZEPINE) [Concomitant]
  5. NEBILET (NEBIVOLOL HYDROCHLORIDE) NEBILET (NEBIVOLOL HYDROCHLORIDE) [Concomitant]
  6. CARMEN (LERCANIDIPINE) CARMEN (LERCANIDIPINE) [Concomitant]

REACTIONS (3)
  - ALOPECIA [None]
  - DIZZINESS [None]
  - FEMORAL NECK FRACTURE [None]
